FAERS Safety Report 7733626-8 (Version None)
Quarter: 2011Q3

REPORT INFORMATION
  Report Type: 
  Country: None (occurrence: None)
  Receive Date: 20110907
  Receipt Date: 20110830
  Transmission Date: 20111222
  Serious: Yes (Hospitalization)
  Sender: FDA-Public Use
  Company Number: KR-BRISTOL-MYERS SQUIBB COMPANY-13208343

PATIENT
  Age: 38 Year
  Sex: Male

DRUGS (3)
  1. VINORELBINE [Suspect]
     Indication: NON-SMALL CELL LUNG CANCER
     Dosage: MOST RECENT INFUSION 24-NOV-05 (4TH INFUSION).
     Route: 042
     Dates: start: 20051020
  2. CISPLATIN [Suspect]
     Indication: NON-SMALL CELL LUNG CANCER
     Dosage: MOST RECENT INFUSION 18-NOV-05 (2ND INFUSION).
     Route: 042
     Dates: start: 20051020
  3. CETUXIMAB [Suspect]
     Indication: NON-SMALL CELL LUNG CANCER
     Dosage: DELAYED ON 30-NOV-05. MOST RECENT INFUSION 24-NOV-05 (6TH INFUSION).
     Route: 041
     Dates: start: 20051020

REACTIONS (5)
  - CELLULITIS [None]
  - FEBRILE NEUTROPENIA [None]
  - WHITE BLOOD CELL COUNT DECREASED [None]
  - HAEMOGLOBIN DECREASED [None]
  - RASH [None]
